FAERS Safety Report 18458886 (Version 1)
Quarter: 2020Q4

REPORT INFORMATION
  Report Type: Report from Study
  Country: MX (occurrence: MX)
  Receive Date: 20201103
  Receipt Date: 20201103
  Transmission Date: 20210114
  Serious: Yes (Hospitalization)
  Sender: FDA-Public Use
  Company Number: MX-UCBSA-2019054299

PATIENT
  Age: 53 Year
  Sex: Female

DRUGS (7)
  1. LACOSAMIDE. [Suspect]
     Active Substance: LACOSAMIDE
     Indication: EPILEPSY
     Dosage: 100 MILLIGRAM, 2X/DAY (BID)
     Route: 048
  2. LORAZEPAM. [Concomitant]
     Active Substance: LORAZEPAM
     Indication: PRODUCT USED FOR UNKNOWN INDICATION
     Dosage: 1 G ONE TABLET IN THE MORNING AND 2 TABLETS AT NIGHT
  3. LACOSAMIDE. [Suspect]
     Active Substance: LACOSAMIDE
     Dosage: 100 MG AT MORNING AND 150 MG AT NIGHT
     Route: 048
  4. VENLAFAXINA [VENLAFAXINE] [Concomitant]
     Active Substance: VENLAFAXINE HYDROCHLORIDE
     Indication: PRODUCT USED FOR UNKNOWN INDICATION
     Dosage: 75 MG, ONE CAPSULE AT MOON
  5. MICROGYNON [ETHINYLESTRADIOL;LEVONORGESTREL] [Concomitant]
     Active Substance: ETHINYL ESTRADIOL\LEVONORGESTREL
     Indication: PRODUCT USED FOR UNKNOWN INDICATION
     Dosage: ONE TABLET AT DAY
  6. LEVETIRACETAM. [Concomitant]
     Active Substance: LEVETIRACETAM
     Indication: PRODUCT USED FOR UNKNOWN INDICATION
     Dosage: 1.5 GRAM, 2X/DAY (BID)
  7. OMEPRAZOLE. [Concomitant]
     Active Substance: OMEPRAZOLE
     Indication: PRODUCT USED FOR UNKNOWN INDICATION
     Dosage: 20 MG ONE CAPSULE AT MORNINGS

REACTIONS (11)
  - Change in seizure presentation [Unknown]
  - Off label use [Unknown]
  - Product dose omission issue [Unknown]
  - Gastric disorder [Unknown]
  - Headache [Unknown]
  - Fatigue [Unknown]
  - Urinary tract infection [Unknown]
  - Seizure [Unknown]
  - Petit mal epilepsy [Not Recovered/Not Resolved]
  - Vomiting [Unknown]
  - Initial insomnia [Unknown]

NARRATIVE: CASE EVENT DATE: 201912
